FAERS Safety Report 21382271 (Version 1)
Quarter: 2022Q3

REPORT INFORMATION
  Report Type: Spontaneous
  Country: US (occurrence: None)
  Receive Date: 20220926
  Receipt Date: 20220926
  Transmission Date: 20221026
  Serious: Yes (Disabling)
  Sender: FDA-Public Use
  Company Number: None

PATIENT
  Age: 62 Year
  Sex: Male
  Weight: 69.75 kg

DRUGS (5)
  1. TAMSULOSIN HYDROCHLORIDE [Suspect]
     Active Substance: TAMSULOSIN HYDROCHLORIDE
     Indication: Benign prostatic hyperplasia
     Dosage: OTHER QUANTITY : 1 CAPSULE(S);?FREQUENCY : DAILY;?
     Route: 048
     Dates: start: 20220907, end: 20220926
  2. VITAMINS [Concomitant]
     Active Substance: VITAMINS
  3. FISH OIL [Concomitant]
     Active Substance: FISH OIL
  4. BETA SITOSTEROL [Concomitant]
  5. HERBALS\SAW PALMETTO [Concomitant]
     Active Substance: HERBALS\SAW PALMETTO

REACTIONS (2)
  - Memory impairment [None]
  - Drug hypersensitivity [None]

NARRATIVE: CASE EVENT DATE: 20220926
